FAERS Safety Report 4859984-X (Version None)
Quarter: 2005Q4

REPORT INFORMATION
  Report Type: 
  Country: None (occurrence: None)
  Receive Date: 20051219
  Receipt Date: 20050617
  Transmission Date: 20060501
  Serious: Yes (Hospitalization)
  Sender: FDA-Public Use
  Company Number: US-MERCK-0506USA02795

PATIENT
  Age: 53 Year
  Sex: Male
  Weight: 100 kg

DRUGS (2)
  1. VIOXX [Suspect]
     Indication: OSTEOARTHRITIS
     Route: 048
     Dates: start: 20020617, end: 20041215
  2. VASOTEC [Concomitant]
     Route: 065

REACTIONS (11)
  - ARTERIOSCLEROSIS [None]
  - BRONCHOSPASM [None]
  - CHRONIC OBSTRUCTIVE PULMONARY DISEASE [None]
  - CORONARY ARTERY OCCLUSION [None]
  - DIABETES MELLITUS NON-INSULIN-DEPENDENT [None]
  - EMOTIONAL DISTRESS [None]
  - GALLBLADDER DISORDER [None]
  - HYPERLIPIDAEMIA [None]
  - MYOCARDIAL INFARCTION [None]
  - MYOCARDIAL ISCHAEMIA [None]
  - TOBACCO ABUSE [None]
